FAERS Safety Report 18493795 (Version 14)
Quarter: 2022Q2

REPORT INFORMATION
  Report Type: Report from Study
  Country: US (occurrence: US)
  Receive Date: 20201111
  Receipt Date: 20220602
  Transmission Date: 20220721
  Serious: Yes (Hospitalization, Other)
  Sender: FDA-Public Use
  Company Number: US-SHIRE-US202020259AA

PATIENT
  Age: 44 Year
  Sex: Female

DRUGS (17)
  1. ICATIBANT [Suspect]
     Active Substance: ICATIBANT ACETATE
     Indication: Immune system disorder
     Dosage: 30 MILLIGRAM
     Route: 058
     Dates: start: 20151012
  2. ICATIBANT [Suspect]
     Active Substance: ICATIBANT ACETATE
     Indication: Immune system disorder
     Dosage: 30 MILLIGRAM
     Route: 058
     Dates: start: 20151012
  3. ICATIBANT [Suspect]
     Active Substance: ICATIBANT ACETATE
     Indication: Organising pneumonia
     Dosage: 30 MILLIGRAM
     Route: 058
     Dates: start: 201510
  4. ICATIBANT [Suspect]
     Active Substance: ICATIBANT ACETATE
     Indication: Organising pneumonia
     Dosage: 30 MILLIGRAM
     Route: 058
     Dates: start: 201510
  5. ICATIBANT [Suspect]
     Active Substance: ICATIBANT ACETATE
     Indication: Pulmonary arterial hypertension
     Dosage: 30 MILLIGRAM
     Route: 058
     Dates: start: 2015
  6. ICATIBANT [Suspect]
     Active Substance: ICATIBANT ACETATE
     Indication: Pulmonary arterial hypertension
     Dosage: 30 MILLIGRAM
     Route: 058
     Dates: start: 2015
  7. ICATIBANT [Suspect]
     Active Substance: ICATIBANT ACETATE
     Indication: Asthma
     Dosage: 30 MILLIGRAM
     Route: 058
     Dates: start: 20160712
  8. ICATIBANT [Suspect]
     Active Substance: ICATIBANT ACETATE
     Indication: Asthma
     Dosage: 30 MILLIGRAM
     Route: 058
     Dates: start: 20160712
  9. ICATIBANT [Suspect]
     Active Substance: ICATIBANT ACETATE
     Dosage: 30 MILLIGRAM
     Route: 058
     Dates: start: 20151012
  10. ICATIBANT [Suspect]
     Active Substance: ICATIBANT ACETATE
     Dosage: 30 MILLIGRAM
     Route: 058
     Dates: start: 20151012
  11. ICATIBANT [Suspect]
     Active Substance: ICATIBANT ACETATE
     Dosage: 30 MILLIGRAM
     Route: 058
     Dates: start: 201911
  12. ICATIBANT [Suspect]
     Active Substance: ICATIBANT ACETATE
     Dosage: 30 MILLIGRAM
     Route: 058
     Dates: start: 201911
  13. MOTEGRITY [Concomitant]
     Active Substance: PRUCALOPRIDE SUCCINATE
  14. TYVASO [Concomitant]
     Active Substance: TREPROSTINIL
     Indication: Product used for unknown indication
     Dosage: UNK UNK, QID
     Route: 050
  15. ADEMPAS [Concomitant]
     Active Substance: RIOCIGUAT
     Indication: Immune system disorder
     Dosage: UNK
  16. PHENERGAN [Concomitant]
     Active Substance: PROMETHAZINE HYDROCHLORIDE
     Indication: Nausea
     Route: 065
  17. RUCONEST [Concomitant]
     Active Substance: HUMAN C1-ESTERASE INHIBITOR
     Indication: Immune system disorder
     Dosage: UNK

REACTIONS (32)
  - Pneumonia [Unknown]
  - Central venous catheterisation [Unknown]
  - Tooth disorder [Unknown]
  - Jaw disorder [Unknown]
  - Hospitalisation [Unknown]
  - Tendonitis [Unknown]
  - Cardiac disorder [Unknown]
  - Intestinal obstruction [Unknown]
  - Vomiting [Unknown]
  - Constipation [Unknown]
  - Fluid retention [Unknown]
  - Myalgia [Unknown]
  - Bone pain [Unknown]
  - Cough [Unknown]
  - Painful respiration [Unknown]
  - Throat irritation [Unknown]
  - Presyncope [Unknown]
  - Taste disorder [Unknown]
  - Productive cough [Unknown]
  - Adverse drug reaction [Unknown]
  - Fatigue [Unknown]
  - Tooth infection [Unknown]
  - Oropharyngeal pain [Unknown]
  - Diarrhoea [Unknown]
  - Chest pain [Unknown]
  - Abdominal pain [Unknown]
  - Dizziness [Unknown]
  - Nausea [Unknown]
  - Headache [Unknown]
  - Product availability issue [Unknown]
  - Inappropriate schedule of product administration [Unknown]
  - Dyspnoea [Unknown]

NARRATIVE: CASE EVENT DATE: 20210510
